FAERS Safety Report 12644911 (Version 4)
Quarter: 2016Q3

REPORT INFORMATION
  Report Type: Spontaneous
  Country: US (occurrence: US)
  Receive Date: 20160811
  Receipt Date: 20160921
  Transmission Date: 20161109
  Serious: No
  Sender: FDA-Public Use
  Company Number: US-PFIZER INC-2016370427

PATIENT
  Age: 62 Year
  Sex: Male
  Weight: 54.43 kg

DRUGS (3)
  1. VIAGRA [Suspect]
     Active Substance: SILDENAFIL CITRATE
     Indication: ERECTILE DYSFUNCTION
     Dosage: 50 MG, 1X/DAY WHEN SEX IS NOT THERE
     Route: 048
  2. STENDRA [Concomitant]
     Active Substance: AVANAFIL
     Dosage: 100 MG, UNK, (100MG- 3 TABLETS)
  3. TAMSULOSIN HCL [Concomitant]
     Active Substance: TAMSULOSIN
     Indication: MICTURITION DISORDER
     Dosage: 0.4 MG, 1X/DAY EVERY NIGHT
     Route: 048

REACTIONS (3)
  - Ejaculation failure [Unknown]
  - Drug ineffective [Unknown]
  - Penile discharge [Unknown]
